FAERS Safety Report 15647863 (Version 1)
Quarter: 2018Q4

REPORT INFORMATION
  Report Type: Spontaneous
  Country: BR (occurrence: BR)
  Receive Date: 20181122
  Receipt Date: 20181122
  Transmission Date: 20190205
  Serious: Yes (Hospitalization)
  Sender: FDA-Public Use
  Company Number: BR-SUN PHARMACEUTICAL INDUSTRIES LTD-2018R1-191785

PATIENT
  Age: 67 Year
  Sex: Male

DRUGS (14)
  1. METHOTREXATE. [Suspect]
     Active Substance: METHOTREXATE
     Indication: POLYARTHRITIS
     Dosage: UNKNOWN
     Route: 065
  2. PREDNISONE. [Suspect]
     Active Substance: PREDNISONE
     Indication: VASCULITIS
  3. CALCIUM [Concomitant]
     Active Substance: CALCIUM
     Indication: RAYNAUD^S PHENOMENON
     Dosage: UNKNOWN
     Route: 065
  4. VITAMIN D [Concomitant]
     Active Substance: CHOLECALCIFEROL
     Indication: RAYNAUD^S PHENOMENON
     Dosage: UNKNOWN
     Route: 065
  5. VITAMIN D [Concomitant]
     Active Substance: CHOLECALCIFEROL
     Indication: CALCINOSIS
  6. METHOTREXATE. [Suspect]
     Active Substance: METHOTREXATE
     Indication: CALCINOSIS
  7. PREDNISONE. [Suspect]
     Active Substance: PREDNISONE
     Indication: CALCINOSIS
  8. HYDROXYCHLOROQUINE [Suspect]
     Active Substance: HYDROXYCHLOROQUINE
     Indication: POLYARTHRITIS
     Dosage: UNKNOWN
     Route: 065
  9. METHOTREXATE. [Suspect]
     Active Substance: METHOTREXATE
     Indication: VASCULITIS
  10. VITAMIN D [Concomitant]
     Active Substance: CHOLECALCIFEROL
     Indication: VASCULITIS
  11. PREDNISONE. [Suspect]
     Active Substance: PREDNISONE
     Indication: RAYNAUD^S PHENOMENON
     Dosage: UNK
     Route: 065
  12. CALCIUM [Concomitant]
     Active Substance: CALCIUM
     Indication: CALCINOSIS
  13. METHOTREXATE. [Suspect]
     Active Substance: METHOTREXATE
     Indication: RAYNAUD^S PHENOMENON
     Dosage: UNKNOWN
     Route: 058
  14. CALCIUM [Concomitant]
     Active Substance: CALCIUM
     Indication: VASCULITIS

REACTIONS (2)
  - Arthritis bacterial [Recovering/Resolving]
  - Drug intolerance [Unknown]
